FAERS Safety Report 7093044-5 (Version None)
Quarter: 2010Q4

REPORT INFORMATION
  Report Type: 
  Country: None (occurrence: None)
  Receive Date: 20101109
  Receipt Date: 20101109
  Transmission Date: 20110411
  Serious: Yes (Hospitalization)
  Sender: FDA-Public Use
  Company Number: None

PATIENT
  Age: 28 Year
  Sex: Male
  Weight: 81 kg

DRUGS (1)
  1. NOVOSEVEN [Suspect]
     Indication: HAEMORRHAGE
     Dosage: 8.7 MG ONCE IV BOLUS
     Route: 040
     Dates: start: 20100924, end: 20100924

REACTIONS (3)
  - PYREXIA [None]
  - SPLENIC INFARCTION [None]
  - WHITE BLOOD CELL COUNT INCREASED [None]
